FAERS Safety Report 4737087-2 (Version None)
Quarter: 2005Q3

REPORT INFORMATION
  Report Type: 
  Country: None (occurrence: None)
  Receive Date: 20050804
  Receipt Date: 20050721
  Transmission Date: 20060218
  Serious: Yes (Hospitalization)
  Sender: FDA-Public Use
  Company Number: 2005AL002891

PATIENT
  Age: 61 Year
  Sex: Female

DRUGS (5)
  1. KADIAN [Suspect]
     Dosage: 120 MG; QD; PO
     Route: 048
     Dates: start: 20050610, end: 20050612
  2. ZELITREX [Suspect]
     Dosage: PO
     Route: 048
     Dates: start: 20050610, end: 20050612
  3. ANAFRANIL [Concomitant]
  4. DI-ANTALVIC [Concomitant]
  5. CLONAZEPAM [Concomitant]

REACTIONS (7)
  - ACIDOSIS [None]
  - DEPRESSED LEVEL OF CONSCIOUSNESS [None]
  - HYPERCAPNIA [None]
  - LOSS OF CONSCIOUSNESS [None]
  - OVERDOSE [None]
  - OXYGEN SATURATION DECREASED [None]
  - RENAL FAILURE ACUTE [None]
